FAERS Safety Report 9613516 (Version 3)
Quarter: 2013Q4

REPORT INFORMATION
  Report Type: Spontaneous
  Country: FI (occurrence: FI)
  Receive Date: 20131010
  Receipt Date: 20131127
  Transmission Date: 20140711
  Serious: Yes (Hospitalization)
  Sender: FDA-Public Use
  Company Number: FI-NAPPMUNDI-GBR-2013-0015910

PATIENT
  Age: 84 Year
  Sex: Male

DRUGS (10)
  1. NORSPAN DEPOTLASSTARI [Suspect]
     Indication: ARTHRALGIA
     Dosage: 10 MCG, Q1H
     Route: 062
     Dates: start: 20130916
  2. NORSPAN DEPOTLASSTARI [Suspect]
     Dosage: 5 MCG, Q1H
     Route: 062
     Dates: start: 20130909, end: 20130916
  3. MAREVAN [Concomitant]
     Indication: TRANSIENT ISCHAEMIC ATTACK
  4. LAXOBERON [Concomitant]
     Dosage: 5 GTT, UNK
  5. FURESIS [Concomitant]
     Dosage: 20 MG, UNK
  6. DUODART [Concomitant]
     Dosage: 0.5/0.4 MG
  7. DONEPEZIL [Concomitant]
     Dosage: 10 MG, UNK
  8. EBIXA [Concomitant]
     Dosage: 20 MG, UNK
  9. MINISUN [Concomitant]
     Dosage: 20 MCG, UNK
  10. PANADOL                            /00020001/ [Concomitant]
     Dosage: 1 G, PRN

REACTIONS (2)
  - Hepatic function abnormal [Recovered/Resolved]
  - Loss of consciousness [Recovered/Resolved]
